FAERS Safety Report 8836921 (Version 1)
Quarter: 2012Q4

REPORT INFORMATION
  Report Type: Spontaneous
  Country: US (occurrence: None)
  Receive Date: 20121011
  Receipt Date: 20121011
  Transmission Date: 20130627
  Serious: No
  Sender: FDA-Public Use
  Company Number: None

PATIENT
  Age: 69 Year
  Sex: Male
  Weight: 90 kg

DRUGS (1)
  1. OLANZAPINE [Suspect]
     Dosage: 2.5 MG AT BEDTIME PO
     Route: 048
     Dates: start: 20120523, end: 20120912

REACTIONS (2)
  - Hyperglycaemia [None]
  - Diabetic ketoacidosis [None]
